FAERS Safety Report 18656751 (Version 1)
Quarter: 2020Q4

REPORT INFORMATION
  Report Type: Spontaneous
  Country: US (occurrence: US)
  Receive Date: 20201223
  Receipt Date: 20201223
  Transmission Date: 20210114
  Serious: Yes (Other)
  Sender: FDA-Public Use
  Company Number: US-PURDUE-USA-2020-0181578

PATIENT
  Sex: Male

DRUGS (1)
  1. HYDROCODONE BITARTRATE AND ACETAMINOPHEN [Suspect]
     Active Substance: ACETAMINOPHEN\HYDROCODONE BITARTRATE
     Indication: PRODUCT USED FOR UNKNOWN INDICATION
     Dosage: UNK
     Route: 048
     Dates: start: 1991

REACTIONS (23)
  - Sleep disorder [Unknown]
  - Cold sweat [Unknown]
  - Respiratory rate decreased [Unknown]
  - Psychomotor skills impaired [Unknown]
  - Somnolence [Unknown]
  - Feeling cold [Unknown]
  - Nausea [Unknown]
  - Anxiety [Unknown]
  - Vomiting [Unknown]
  - Unevaluable event [Unknown]
  - Drug dependence [Unknown]
  - Hyperaesthesia [Unknown]
  - Myalgia [Unknown]
  - Influenza like illness [Unknown]
  - Feeling of despair [Unknown]
  - Rehabilitation therapy [Unknown]
  - Confusional state [Unknown]
  - Bone pain [Unknown]
  - Decreased appetite [Unknown]
  - Diarrhoea [Unknown]
  - Constipation [Unknown]
  - Overdose [Unknown]
  - Depression [Unknown]
